FAERS Safety Report 9769885 (Version 1)
Quarter: 2013Q4

REPORT INFORMATION
  Report Type: Spontaneous
  Country: US (occurrence: US)
  Receive Date: 20131218
  Receipt Date: 20131218
  Transmission Date: 20140711
  Serious: No
  Sender: FDA-Public Use
  Company Number: US-VERTEX PHARMACEUTICALS INC-AE-2011-000678

PATIENT
  Sex: 0

DRUGS (1)
  1. INCIVEK [Suspect]
     Indication: HEPATITIS C

REACTIONS (4)
  - Dizziness [Unknown]
  - Abdominal pain upper [Unknown]
  - Nausea [Unknown]
  - Fatigue [Unknown]
